FAERS Safety Report 24069274 (Version 1)
Quarter: 2024Q3

REPORT INFORMATION
  Report Type: Spontaneous
  Country: CN (occurrence: CN)
  Receive Date: 20240710
  Receipt Date: 20240710
  Transmission Date: 20241017
  Serious: No
  Sender: ROCHE
  Company Number: CN-ROCHE-3468273

PATIENT
  Age: 70 Year
  Sex: Female
  Weight: 51.0 kg

DRUGS (1)
  1. ALECENSA [Suspect]
     Active Substance: ALECTINIB HYDROCHLORIDE
     Indication: Lung neoplasm malignant
     Route: 048
     Dates: start: 20191023

REACTIONS (5)
  - Blood bilirubin abnormal [Unknown]
  - Renal impairment [Unknown]
  - Oedema [Unknown]
  - Paronychia [Unknown]
  - Paronychia [Unknown]

NARRATIVE: CASE EVENT DATE: 20231122
